FAERS Safety Report 4616037-3 (Version None)
Quarter: 2005Q1

REPORT INFORMATION
  Report Type: 
  Country: None (occurrence: None)
  Receive Date: 20050321
  Receipt Date: 20050304
  Transmission Date: 20050727
  Serious: Yes (Hospitalization)
  Sender: FDA-Public Use
  Company Number: S05-NOR-00143-01

PATIENT
  Age: 84 Year
  Sex: Female

DRUGS (7)
  1. CIPRALEX (ESCITALOPRAM) [Suspect]
     Indication: ANXIETY
     Dosage: 10 MG QD PO
     Route: 048
     Dates: start: 20041126, end: 20041221
  2. CIPRALEX (ESCITALOPRAM) [Suspect]
     Indication: DEPRESSION
     Dosage: 10 MG QD PO
     Route: 048
     Dates: start: 20041126, end: 20041221
  3. PINEX [Concomitant]
  4. PARALGIN FORTE [Concomitant]
  5. ATENOLOL [Concomitant]
  6. RIVOTRIL (CLORAZEPAM) [Concomitant]
  7. ALBYL-E [Concomitant]

REACTIONS (3)
  - BLOOD POTASSIUM DECREASED [None]
  - GENERAL PHYSICAL HEALTH DETERIORATION [None]
  - INAPPROPRIATE ANTIDIURETIC HORMONE SECRETION [None]
